FAERS Safety Report 9833145 (Version 1)
Quarter: 2014Q1

REPORT INFORMATION
  Report Type: Spontaneous
  Country: US (occurrence: US)
  Receive Date: 20140121
  Receipt Date: 20140121
  Transmission Date: 20141002
  Serious: Yes (Other)
  Sender: FDA-Public Use
  Company Number: US-CELGENEUS-163-21880-14011623

PATIENT
  Sex: 0

DRUGS (4)
  1. REVLIMID [Suspect]
     Indication: PLASMA CELL MYELOMA
     Dosage: 25 MILLIGRAM
     Route: 048
  2. REVLIMID [Suspect]
     Dosage: 10 MILLIGRAM
     Route: 048
  3. CARFILZOMIB [Suspect]
     Indication: PLASMA CELL MYELOMA
     Dosage: 20/36 MG/M2
     Route: 041
  4. DEXAMETHASONE [Suspect]
     Indication: PLASMA CELL MYELOMA
     Dosage: 20/10 MG

REACTIONS (11)
  - Hyperglycaemia [Unknown]
  - Rash [Unknown]
  - Cardiac failure congestive [Unknown]
  - Dyspnoea [Unknown]
  - Liver function test abnormal [Unknown]
  - Blood creatinine increased [Unknown]
  - Lymphopenia [Unknown]
  - Thrombocytopenia [Unknown]
  - Leukopenia [Unknown]
  - Neutropenia [Unknown]
  - Anaemia [Unknown]
